FAERS Safety Report 4816498-0 (Version None)
Quarter: 2005Q4

REPORT INFORMATION
  Report Type: 
  Country: None (occurrence: None)
  Receive Date: 20051028
  Receipt Date: 20051020
  Transmission Date: 20060501
  Serious: Yes (Other)
  Sender: FDA-Public Use
  Company Number: HQWYE144921OCT05

PATIENT
  Sex: Male

DRUGS (1)
  1. EFFEXOR [Suspect]
     Dosage: TRIED TO COME OFF OF EFFEXOR ^SEVERAL TIMES^

REACTIONS (7)
  - ABNORMAL DREAMS [None]
  - BLOOD PRESSURE FLUCTUATION [None]
  - DRUG DEPENDENCE [None]
  - DRUG WITHDRAWAL SYNDROME [None]
  - SEXUAL DYSFUNCTION [None]
  - SUICIDAL IDEATION [None]
  - VERTIGO [None]
